FAERS Safety Report 5977422-0 (Version None)
Quarter: 2008Q4

REPORT INFORMATION
  Report Type: 
  Country: None (occurrence: None)
  Receive Date: 20081201
  Receipt Date: 20081201
  Transmission Date: 20090506
  Serious: Yes (Life-Threatening, Disabling, Other)
  Sender: FDA-Public Use
  Company Number: None

PATIENT
  Age: 57 Year
  Sex: Female
  Weight: 81.6475 kg

DRUGS (1)
  1. CIPRO [Suspect]
     Indication: ABDOMINAL PAIN UPPER
     Dosage: 1 PILL TWICE A DAY TWICE A DAY BUCCAL
     Route: 002
     Dates: start: 20080912, end: 20080914

REACTIONS (19)
  - ANGER [None]
  - ASTHENIA [None]
  - CONFUSIONAL STATE [None]
  - DISORIENTATION [None]
  - DISTURBANCE IN ATTENTION [None]
  - FEAR [None]
  - FEELING ABNORMAL [None]
  - GAIT DISTURBANCE [None]
  - GENERALISED ANXIETY DISORDER [None]
  - INSOMNIA [None]
  - MENTAL DISORDER [None]
  - MUSCLE CONTRACTURE [None]
  - MUSCLE RIGIDITY [None]
  - NASOPHARYNGITIS [None]
  - ORTHOSIS USER [None]
  - PAIN [None]
  - PARAESTHESIA [None]
  - SLUGGISHNESS [None]
  - TENDINOUS CONTRACTURE [None]
